FAERS Safety Report 23959985 (Version 2)
Quarter: 2024Q3

REPORT INFORMATION
  Report Type: Spontaneous
  Country: US (occurrence: US)
  Receive Date: 20240611
  Receipt Date: 20240702
  Transmission Date: 20241016
  Serious: No
  Sender: REGENERON
  Company Number: US-REGENERON PHARMACEUTICALS, INC.-2024-082484

PATIENT
  Sex: Male

DRUGS (2)
  1. EYLEA [Suspect]
     Active Substance: AFLIBERCEPT
     Indication: Neovascular age-related macular degeneration
     Dosage: 2 MG, EVERY 8 WEEKS, IN RIGHT EYE (TREATED IN BOTH EYES), FORMULATION: PFS GERRESHEIMER
     Dates: start: 20220503, end: 202309
  2. EYLEA [Suspect]
     Active Substance: AFLIBERCEPT
     Indication: Choroidal neovascularisation
     Dosage: 2 MG, EVERY 8 WEEKS, IN LEFT EYE, FORMULATION: PFS GERRESHEIMER
     Dates: end: 202404

REACTIONS (1)
  - Product dose omission issue [Unknown]
